FAERS Safety Report 7766053-8 (Version None)
Quarter: 2011Q3

REPORT INFORMATION
  Report Type: 
  Country: None (occurrence: None)
  Receive Date: 20110921
  Receipt Date: 20110915
  Transmission Date: 20111222
  Serious: Yes (Life-Threatening)
  Sender: FDA-Public Use
  Company Number: NL-CELGENEUS-114-21880-09050772

PATIENT
  Sex: Male
  Weight: 88 kg

DRUGS (8)
  1. REVLIMID [Suspect]
     Indication: MULTIPLE MYELOMA
     Dosage: 25 MILLIGRAM
     Route: 048
     Dates: start: 20090112
  2. DEXAMETHASONE [Suspect]
     Indication: MULTIPLE MYELOMA
     Dosage: 5.3333 MILLIGRAM
     Route: 048
  3. TOLBUTAMIDE [Concomitant]
     Indication: DIABETES MELLITUS
     Dosage: 500 MILLIGRAM
     Route: 048
     Dates: start: 20090101
  4. WARFARIN SODIUM [Concomitant]
  5. WARFARIN SODIUM [Concomitant]
     Indication: PROPHYLAXIS
     Dosage: BASED ON TARGET INR 2-3
     Route: 065
  6. REVLIMID [Suspect]
     Dosage: 15 MILLIGRAM
     Route: 048
     Dates: start: 20090209, end: 20090211
  7. REVLIMID [Suspect]
     Dosage: 15 MILLIGRAM
     Route: 048
     Dates: start: 20090406, end: 20090423
  8. FRAXIPARINE [Concomitant]
     Indication: PROPHYLAXIS
     Dosage: .3 MILLILITER
     Route: 058
     Dates: start: 20090423, end: 20090502

REACTIONS (2)
  - SEPSIS [None]
  - PNEUMONIA [None]
